FAERS Safety Report 15488393 (Version 1)
Quarter: 2018Q4

REPORT INFORMATION
  Report Type: Spontaneous
  Country: FR (occurrence: FR)
  Receive Date: 20181011
  Receipt Date: 20181011
  Transmission Date: 20190205
  Serious: Yes (Hospitalization, Other)
  Sender: FDA-Public Use
  Company Number: FR-BRISTOL-MYERS SQUIBB COMPANY-BMS-2018-092648

PATIENT
  Age: 73 Year
  Sex: Female

DRUGS (2)
  1. HYDREA [Suspect]
     Active Substance: HYDROXYUREA
     Indication: POLYCYTHAEMIA VERA
     Dosage: 500 MG, 1 DAY INTERVAL
     Route: 048
     Dates: start: 20170704, end: 20180823
  2. KARDEGIC [Suspect]
     Active Substance: ASPIRIN DL-LYSINE
     Indication: POLYCYTHAEMIA VERA
     Dosage: 75 MG, 1 DAY DRUG INTERVAL
     Route: 048
     Dates: start: 20170704, end: 20180823

REACTIONS (2)
  - Anaemia [Recovering/Resolving]
  - Colitis erosive [Not Recovered/Not Resolved]

NARRATIVE: CASE EVENT DATE: 20180823
